FAERS Safety Report 6717677-8 (Version None)
Quarter: 2010Q2

REPORT INFORMATION
  Report Type: 
  Country: None (occurrence: None)
  Receive Date: 20100510
  Receipt Date: 20100428
  Transmission Date: 20101027
  Serious: Yes (Death, Hospitalization)
  Sender: FDA-Public Use
  Company Number: US-SANOFI-AVENTIS-2010SA025375

PATIENT
  Age: 74 Year
  Sex: Male
  Weight: 65.76 kg

DRUGS (7)
  1. PLAVIX [Suspect]
     Route: 065
     Dates: start: 20100211
  2. HEPARIN [Suspect]
     Route: 042
     Dates: start: 20100201, end: 20100201
  3. ALTACE [Concomitant]
  4. METOPROLOL SUCCINATE [Concomitant]
     Route: 048
  5. LESCOL [Concomitant]
     Route: 048
  6. NIACIN [Concomitant]
     Route: 048
  7. ASPIRIN [Concomitant]
     Route: 048

REACTIONS (5)
  - ARTERIOSCLEROSIS [None]
  - CARDIO-RESPIRATORY ARREST [None]
  - CEREBRAL HAEMORRHAGE [None]
  - CEREBRAL THROMBOSIS [None]
  - CEREBROVASCULAR ACCIDENT [None]
